FAERS Safety Report 7543747-0 (Version None)
Quarter: 2011Q2

REPORT INFORMATION
  Report Type: 
  Country: None (occurrence: None)
  Receive Date: 20110613
  Receipt Date: 20040830
  Transmission Date: 20111010
  Serious: Yes (Hospitalization)
  Sender: FDA-Public Use
  Company Number: PHHO2004JP06884

PATIENT
  Sex: Female

DRUGS (7)
  1. KERLONG [Concomitant]
     Indication: HYPERTENSION
     Dosage: 5 MG, UNK
     Route: 048
     Dates: start: 19981216, end: 20031218
  2. DIOVAN [Suspect]
     Indication: HYPERTENSION
     Dosage: 80 MG, QD
     Route: 048
     Dates: start: 20030409, end: 20031218
  3. ADALAT [Concomitant]
     Indication: HYPERTENSION
     Dosage: 40 MG, UNK
     Route: 048
     Dates: start: 19890717, end: 20031218
  4. BUFFERIN [Concomitant]
     Indication: ATRIAL FIBRILLATION
     Dates: start: 19950117
  5. MARZULENE [Concomitant]
     Indication: GASTRITIS
     Dosage: 1.5 MG, UNK
     Route: 048
     Dates: start: 19950117, end: 20031218
  6. LANIRAPID [Concomitant]
     Indication: ATRIAL FIBRILLATION
     Dosage: .1 MG, UNK
     Route: 048
     Dates: start: 19950117, end: 20031218
  7. BEZATOL - SLOW RELEASE [Concomitant]
     Indication: BLOOD TRIGLYCERIDES INCREASED
     Dosage: 400 MG, UNK
     Route: 048
     Dates: start: 19991117, end: 20031218

REACTIONS (8)
  - DEPRESSED LEVEL OF CONSCIOUSNESS [None]
  - HEMIPLEGIA [None]
  - CEREBRAL ARTERY EMBOLISM [None]
  - SENSORY DISTURBANCE [None]
  - APHASIA [None]
  - DYSARTHRIA [None]
  - ATRIAL FIBRILLATION [None]
  - CONCOMITANT DISEASE PROGRESSION [None]
